FAERS Safety Report 8571619 (Version 5)
Quarter: 2014Q1

REPORT INFORMATION
  Report Type: Spontaneous
  Country: US (occurrence: US)
  Receive Date: 20120521
  Receipt Date: 20140213
  Transmission Date: 20141002
  Serious: Yes (Hospitalization, Disabling, Other)
  Sender: FDA-Public Use
  Company Number: US-MERCK-1205USA02868

PATIENT
  Sex: Female
  Weight: 64.85 kg

DRUGS (4)
  1. FOSAMAX [Suspect]
     Indication: OSTEOPOROSIS
     Dosage: 70 MG, QW
     Route: 048
     Dates: start: 20041229, end: 201012
  2. ALENDRONATE SODIUM [Suspect]
     Indication: OSTEOPOROSIS
     Dosage: 70 MG, QW
     Route: 048
     Dates: start: 20090204, end: 201012
  3. FOSAMAX PLUS D [Suspect]
     Indication: OSTEOPOROSIS
     Dosage: 70MG/2800IU QW
     Route: 048
     Dates: start: 20070531, end: 200902
  4. ALENDRONATE SODIUM [Suspect]
     Indication: OSTEOPOROSIS
     Dosage: 70MG/75 ML
     Route: 048
     Dates: start: 20070301, end: 200705

REACTIONS (56)
  - Intramedullary rod insertion [Unknown]
  - Lung adenocarcinoma stage IV [Unknown]
  - Metastases to bone [Unknown]
  - Metastases to spine [Unknown]
  - Hip fracture [Unknown]
  - Femur fracture [Not Recovered/Not Resolved]
  - Femur fracture [Recovered/Resolved]
  - Femur fracture [Recovering/Resolving]
  - Low turnover osteopathy [Not Recovered/Not Resolved]
  - Lower limb fracture [Not Recovered/Not Resolved]
  - Endodontic procedure [Unknown]
  - Hypertension [Unknown]
  - Pain [Unknown]
  - Osteopenia [Unknown]
  - Spinal osteoarthritis [Unknown]
  - Osteoarthritis [Unknown]
  - Tooth disorder [Unknown]
  - Anaemia [Unknown]
  - Blood uric acid increased [Unknown]
  - Spinal deformity [Unknown]
  - Hepatic cyst [Unknown]
  - Bone scan abnormal [Unknown]
  - Radiotherapy to lung [Unknown]
  - Bone scan abnormal [Unknown]
  - Arthritis [Unknown]
  - Pulmonary fibrosis [Unknown]
  - Spinal osteoarthritis [Unknown]
  - Neuropathy peripheral [Unknown]
  - Aortic arteriosclerosis [Unknown]
  - Pulmonary vascular disorder [Unknown]
  - Lung disorder [Unknown]
  - Lung disorder [Unknown]
  - Spondylolysis [Unknown]
  - Bone scan abnormal [Unknown]
  - Thyroid neoplasm [Unknown]
  - Vertebral wedging [Not Recovered/Not Resolved]
  - Hepatic steatosis [Unknown]
  - Granuloma [Unknown]
  - Hypercalcaemia [Unknown]
  - Hyperuricaemia [Unknown]
  - Lung consolidation [Unknown]
  - Lung consolidation [Unknown]
  - Spinal deformity [Unknown]
  - Vitamin D decreased [Unknown]
  - Vitamin D decreased [Unknown]
  - Hyperlipidaemia [Unknown]
  - Hypertriglyceridaemia [Unknown]
  - Glucose tolerance impaired [Unknown]
  - Viral test positive [Unknown]
  - Stress urinary incontinence [Unknown]
  - Cystocele [Unknown]
  - Pain in extremity [Unknown]
  - Bone pain [Unknown]
  - Nausea [Unknown]
  - Myalgia [Recovered/Resolved]
  - Pain in extremity [Unknown]
